FAERS Safety Report 24666973 (Version 1)
Quarter: 2024Q4

REPORT INFORMATION
  Report Type: Spontaneous
  Country: US (occurrence: US)
  Receive Date: 20241126
  Receipt Date: 20241126
  Transmission Date: 20250115
  Serious: Yes (Other)
  Sender: VERTEX
  Company Number: US-VERTEX PHARMACEUTICALS-2024-018234

PATIENT

DRUGS (2)
  1. TRIKAFTA [Suspect]
     Active Substance: ELEXACAFTOR\IVACAFTOR\TEZACAFTOR
     Indication: Cystic fibrosis
     Dosage: FULL DOSE
     Route: 048
  2. TRIKAFTA [Suspect]
     Active Substance: ELEXACAFTOR\IVACAFTOR\TEZACAFTOR
     Dosage: MODIFIED DOSE IN 21 PATIENTS
     Route: 048

REACTIONS (62)
  - Pancreatitis [Unknown]
  - Drug-induced liver injury [Unknown]
  - Anxiety [Unknown]
  - Insomnia [Unknown]
  - Attention deficit hyperactivity disorder [Unknown]
  - Portal hypertension [Unknown]
  - Angiopathy [Unknown]
  - Psychomotor hyperactivity [Unknown]
  - Brain fog [Unknown]
  - Confusional state [Unknown]
  - Memory impairment [Unknown]
  - Aphasia [Unknown]
  - Constipation [Unknown]
  - Nausea [Unknown]
  - Intestinal obstruction [Unknown]
  - Gastrooesophageal reflux disease [Unknown]
  - Hunger [Unknown]
  - Cholelithiasis [Unknown]
  - Blood glucose abnormal [Unknown]
  - Arthritis [Unknown]
  - Arthropathy [Unknown]
  - Myalgia [Unknown]
  - Arthralgia [Unknown]
  - Nephrolithiasis [Unknown]
  - Urinary tract infection [Unknown]
  - Testicular pain [Unknown]
  - Menstrual disorder [Unknown]
  - Libido disorder [Unknown]
  - Blood pressure fluctuation [Unknown]
  - Palpitations [Unknown]
  - Weight increased [Unknown]
  - Swelling [Unknown]
  - Cataract [Unknown]
  - Vision blurred [Unknown]
  - Lacrimation increased [Unknown]
  - Chalazion [Unknown]
  - Sensitive skin [Unknown]
  - Petechiae [Unknown]
  - Livedo reticularis [Unknown]
  - Pollakiuria [Unknown]
  - Dyspnoea [Unknown]
  - Oxygen consumption increased [Unknown]
  - Sputum abnormal [Unknown]
  - Rhinitis allergic [Unknown]
  - Duodenitis [Unknown]
  - Fatigue [Unknown]
  - Malaise [Unknown]
  - Dental caries [Unknown]
  - Premenstrual dysphoric disorder [Unknown]
  - Depression [Unknown]
  - Abdominal distension [Unknown]
  - Dizziness [Unknown]
  - Pruritus [Unknown]
  - Acne [Unknown]
  - Rhinorrhoea [Unknown]
  - Diarrhoea [Unknown]
  - Abdominal pain upper [Unknown]
  - Abdominal pain [Unknown]
  - Hepatic enzyme increased [Unknown]
  - Headache [Unknown]
  - Rash [Unknown]
  - Blood bilirubin increased [Unknown]
